FAERS Safety Report 12917148 (Version 1)
Quarter: 2016Q4

REPORT INFORMATION
  Report Type: Spontaneous
  Country: US (occurrence: US)
  Receive Date: 20161107
  Receipt Date: 20161107
  Transmission Date: 20170207
  Serious: No
  Sender: FDA-Public Use
  Company Number: US-JAZZ-2016-US-017482

PATIENT
  Sex: Female

DRUGS (12)
  1. GABAPENTIN. [Concomitant]
     Active Substance: GABAPENTIN
  2. CYMBALTA [Concomitant]
     Active Substance: DULOXETINE HYDROCHLORIDE
  3. XYREM [Suspect]
     Active Substance: SODIUM OXYBATE
     Indication: CATAPLEXY
  4. PLAQUENIL [Concomitant]
     Active Substance: HYDROXYCHLOROQUINE SULFATE
  5. ACIPHEX [Concomitant]
     Active Substance: RABEPRAZOLE SODIUM
  6. DEPLIN [Concomitant]
     Active Substance: LEVOMEFOLATE CALCIUM
  7. SKELAXIN [Concomitant]
     Active Substance: METAXALONE
  8. ZOFRAN [Concomitant]
     Active Substance: ONDANSETRON HYDROCHLORIDE
  9. ZANTAC [Concomitant]
     Active Substance: RANITIDINE HYDROCHLORIDE
  10. XYREM [Suspect]
     Active Substance: SODIUM OXYBATE
     Indication: NARCOLEPSY
     Dosage: 2.25 G, BID
     Route: 048
     Dates: start: 201505
  11. NUVIGIL [Concomitant]
     Active Substance: ARMODAFINIL
  12. TRAMADOL HCL [Concomitant]
     Active Substance: TRAMADOL HYDROCHLORIDE

REACTIONS (4)
  - Sleep disorder [Unknown]
  - Thirst [Unknown]
  - Expired product administered [Unknown]
  - Product preparation error [Unknown]
